FAERS Safety Report 6734752-2 (Version None)
Quarter: 2010Q2

REPORT INFORMATION
  Report Type: 
  Country: None (occurrence: None)
  Receive Date: 20100519
  Receipt Date: 20100519
  Transmission Date: 20101027
  Serious: Yes (Other)
  Sender: FDA-Public Use
  Company Number: None

PATIENT
  Age: 50 Year
  Sex: Female
  Weight: 65.7716 kg

DRUGS (2)
  1. FLEXIAL [Suspect]
     Indication: SPINAL DISORDER
     Dosage: 10 MG 1 DAILY 3
     Dates: start: 20030614
  2. THORAZINE [Suspect]
     Indication: ANXIETY
     Dosage: 25 MG INTERVAL DOSE OSTERO-ARTHRITIS STRAIGHTEN

REACTIONS (1)
  - VISION BLURRED [None]
